FAERS Safety Report 5112916-1 (Version None)
Quarter: 2006Q3

REPORT INFORMATION
  Report Type: 
  Country: None (occurrence: None)
  Receive Date: 20060921
  Receipt Date: 20060921
  Transmission Date: 20061208
  Serious: Yes (Other)
  Sender: FDA-Public Use
  Company Number: None

PATIENT
  Sex: Male
  Weight: 117.9352 kg

DRUGS (1)
  1. APIDRA [Suspect]
     Indication: DIABETES MELLITUS NON-INSULIN-DEPENDENT
     Dosage: 5 UNITS QHS SC INJECTIONS
     Route: 058
     Dates: start: 20060901, end: 20060918

REACTIONS (5)
  - CHEST DISCOMFORT [None]
  - FEELING ABNORMAL [None]
  - HEADACHE [None]
  - PARAESTHESIA [None]
  - PRURITUS [None]
